FAERS Safety Report 23736639 (Version 1)
Quarter: 2024Q2

REPORT INFORMATION
  Report Type: Spontaneous
  Country: US (occurrence: US)
  Receive Date: 20240412
  Receipt Date: 20240412
  Transmission Date: 20240716
  Serious: Yes (Other)
  Sender: FDA-Public Use
  Company Number: US-002147023-NVSC2024US077172

PATIENT

DRUGS (1)
  1. TRICLABENDAZOLE [Suspect]
     Active Substance: TRICLABENDAZOLE
     Indication: Product used for unknown indication
     Dosage: UNK
     Route: 065

REACTIONS (8)
  - Liver disorder [Unknown]
  - Hepatotoxicity [Unknown]
  - Scleral discolouration [Unknown]
  - Yellow skin [Unknown]
  - Influenza like illness [Unknown]
  - Hepatic fibrosis [Unknown]
  - Hepatomegaly [Unknown]
  - Opisthorchiasis [Unknown]
